FAERS Safety Report 7854463-X (Version None)
Quarter: 2011Q3

REPORT INFORMATION
  Report Type: 
  Country: None (occurrence: None)
  Receive Date: 20110916
  Receipt Date: 20110210
  Transmission Date: 20111222
  Serious: Yes (Hospitalization)
  Sender: FDA-Public Use
  Company Number: 2011SP006441

PATIENT
  Age: 22 Year
  Sex: Female
  Weight: 79.8331 kg

DRUGS (1)
  1. IMPLANON [Suspect]
     Indication: CONTRACEPTION
     Dates: start: 20100813

REACTIONS (8)
  - VOMITING [None]
  - IMPLANT SITE PRURITUS [None]
  - MENOMETRORRHAGIA [None]
  - DYSMENORRHOEA [None]
  - NAUSEA [None]
  - ABDOMINAL PAIN UPPER [None]
  - IMPLANT SITE PAIN [None]
  - MIGRAINE [None]
